FAERS Safety Report 4961995-0 (Version None)
Quarter: 2006Q2

REPORT INFORMATION
  Report Type: 
  Country: None (occurrence: None)
  Receive Date: 20060404
  Receipt Date: 20051129
  Transmission Date: 20061013
  Serious: Yes (Death)
  Sender: FDA-Public Use
  Company Number: US-MERCK-0511USA04486

PATIENT
  Age: 76 Year
  Sex: Female

DRUGS (2)
  1. VIOXX [Suspect]
     Indication: RHEUMATOID ARTHRITIS
     Route: 048
     Dates: start: 19990101, end: 20030901
  2. VIOXX [Suspect]
     Indication: OSTEOARTHRITIS
     Route: 048
     Dates: start: 19990101, end: 20030901

REACTIONS (4)
  - CATARACT [None]
  - CEREBROVASCULAR ACCIDENT [None]
  - SMALL INTESTINAL OBSTRUCTION [None]
  - UTERINE CANCER [None]
